FAERS Safety Report 4674123-6 (Version None)
Quarter: 2005Q2

REPORT INFORMATION
  Report Type: 
  Country: None (occurrence: None)
  Receive Date: 20050524
  Receipt Date: 20050524
  Transmission Date: 20051028
  Serious: Yes (Other)
  Sender: FDA-Public Use
  Company Number: None

PATIENT
  Sex: Female
  Weight: 89.3586 kg

DRUGS (4)
  1. PAXIL [Suspect]
     Indication: SOCIAL PHOBIA
     Dosage: 1 DAILY     ORAL
     Route: 048
     Dates: start: 19980210, end: 20041215
  2. ATENOLOL [Concomitant]
  3. LEVOXYL [Concomitant]
  4. WELLBUTRIN [Concomitant]

REACTIONS (15)
  - ABDOMINAL PAIN UPPER [None]
  - ANGER [None]
  - DISTURBANCE IN ATTENTION [None]
  - DRUG INEFFECTIVE [None]
  - DRUG WITHDRAWAL SYNDROME [None]
  - FEAR [None]
  - FEELING ABNORMAL [None]
  - HOT FLUSH [None]
  - MANIA [None]
  - MOOD SWINGS [None]
  - OBSESSIVE-COMPULSIVE DISORDER [None]
  - PARADOXICAL DRUG REACTION [None]
  - SELF ESTEEM DECREASED [None]
  - WEIGHT INCREASED [None]
  - WEIGHT LOSS POOR [None]
